FAERS Safety Report 10520325 (Version 1)
Quarter: 2014Q4

REPORT INFORMATION
  Report Type: Spontaneous
  Country: US (occurrence: US)
  Receive Date: 20141015
  Receipt Date: 20141015
  Transmission Date: 20150528
  Serious: No
  Sender: FDA-Public Use
  Company Number: US-GLAXOSMITHKLINE-US2014GSK000262

PATIENT
  Sex: Female

DRUGS (3)
  1. PREMARIN [Concomitant]
     Active Substance: ESTROGENS, CONJUGATED
  2. SYNTHROID [Concomitant]
     Active Substance: LEVOTHYROXINE SODIUM
  3. TYKERB [Suspect]
     Active Substance: LAPATINIB DITOSYLATE
     Indication: CHRONIC MYELOID LEUKAEMIA
     Dosage: 1500 MG, UNK
     Route: 048
     Dates: start: 20140408, end: 20140925

REACTIONS (1)
  - Neoplasm progression [Unknown]
